FAERS Safety Report 13774376 (Version 2)
Quarter: 2017Q3

REPORT INFORMATION
  Report Type: Spontaneous
  Country: NL (occurrence: NL)
  Receive Date: 20170721
  Receipt Date: 20170921
  Transmission Date: 20171127
  Serious: Yes (Death, Other)
  Sender: FDA-Public Use
  Company Number: NL-APOPHARMA USA, INC.-2017AP015033

PATIENT
  Age: 60 Year
  Sex: Male

DRUGS (2)
  1. TUMOR NECROSIS FACTOR ALPHA (TNF-) INHIBITORS [Concomitant]
     Active Substance: UNSPECIFIED INGREDIENT
     Indication: NEUROENDOCRINE CARCINOMA OF THE SKIN
     Dosage: 3 MG, OTHER
     Route: 050
     Dates: start: 2007
  2. ALKERAN [Suspect]
     Active Substance: MELPHALAN
     Indication: NEUROENDOCRINE CARCINOMA OF THE SKIN
     Dosage: 65 MG, OTHER
     Route: 050
     Dates: start: 2007

REACTIONS (3)
  - Toxicity to various agents [Unknown]
  - Cardiac failure [Fatal]
  - Renal impairment [Fatal]
